FAERS Safety Report 23778049 (Version 1)
Quarter: 2024Q2

REPORT INFORMATION
  Report Type: Spontaneous
  Country: US (occurrence: None)
  Receive Date: 20240423
  Receipt Date: 20240423
  Transmission Date: 20240716
  Serious: No
  Sender: FDA-Public Use
  Company Number: None

PATIENT
  Age: 68 Year
  Sex: Male
  Weight: 85.05 kg

DRUGS (1)
  1. GABAPENTIN [Suspect]
     Active Substance: GABAPENTIN
     Indication: Back pain
     Dosage: 100 MG TWICE A DAY ORAL
     Route: 048
     Dates: start: 20240315, end: 20240422

REACTIONS (2)
  - Ageusia [None]
  - Eating disorder [None]

NARRATIVE: CASE EVENT DATE: 20240315
